FAERS Safety Report 6581443-7 (Version None)
Quarter: 2010Q1

REPORT INFORMATION
  Report Type: 
  Country: None (occurrence: None)
  Receive Date: 20100215
  Receipt Date: 20100208
  Transmission Date: 20100710
  Serious: Yes (Other)
  Sender: FDA-Public Use
  Company Number: A0843516A

PATIENT
  Age: 65 Year
  Sex: Male

DRUGS (8)
  1. ADVAIR DISKUS 100/50 [Suspect]
     Indication: ASTHMA
     Dosage: 1PUFF PER DAY
     Route: 055
  2. ALPHAGAN P [Concomitant]
  3. ACIPHEX [Concomitant]
  4. AMLODIPINE [Concomitant]
  5. METOPROLOL TARTRATE [Concomitant]
  6. CLARINEX [Concomitant]
  7. NASONEX [Concomitant]
  8. MULTI-VITAMIN [Concomitant]

REACTIONS (2)
  - BLINDNESS [None]
  - DYSPNOEA [None]
